FAERS Safety Report 5303707-7 (Version None)
Quarter: 2007Q2

REPORT INFORMATION
  Report Type: 
  Country: None (occurrence: None)
  Receive Date: 20070420
  Receipt Date: 20070411
  Transmission Date: 20071010
  Serious: Yes (Other)
  Sender: FDA-Public Use
  Company Number: US-PFIZER INC-2006097155

PATIENT
  Sex: Male
  Weight: 102.1 kg

DRUGS (3)
  1. BEXTRA [Suspect]
     Indication: OSTEOARTHRITIS
     Route: 048
     Dates: start: 20050104, end: 20050501
  2. CELEBREX [Concomitant]
  3. LOTREL [Concomitant]

REACTIONS (2)
  - DERMATITIS ALLERGIC [None]
  - STEVENS-JOHNSON SYNDROME [None]
